FAERS Safety Report 6729441-4 (Version None)
Quarter: 2010Q2

REPORT INFORMATION
  Report Type: 
  Country: None (occurrence: None)
  Receive Date: 20100518
  Receipt Date: 20100510
  Transmission Date: 20101027
  Serious: No
  Sender: FDA-Public Use
  Company Number: US-BIOGENIDEC-2010BI007639

PATIENT
  Age: 56 Year
  Sex: Female

DRUGS (1)
  1. TYSABRI [Suspect]
     Indication: MULTIPLE SCLEROSIS
     Route: 042
     Dates: start: 20090825

REACTIONS (7)
  - ASTHENIA [None]
  - CONTUSION [None]
  - FALL [None]
  - FEAR [None]
  - GAIT DISTURBANCE [None]
  - INFLUENZA [None]
  - MULTIPLE SCLEROSIS RELAPSE [None]
